FAERS Safety Report 6553612-3 (Version None)
Quarter: 2010Q1

REPORT INFORMATION
  Report Type: 
  Country: None (occurrence: None)
  Receive Date: 20100122
  Receipt Date: 20100111
  Transmission Date: 20100710
  Serious: Yes (Death)
  Sender: FDA-Public Use
  Company Number: 004799

PATIENT
  Age: 67 Year
  Sex: Female

DRUGS (5)
  1. ALPRAZOLAM [Suspect]
  2. FENTANYL-100 [Suspect]
  3. DIAZEPAM [Suspect]
  4. METOPROLOL TARTRATE [Suspect]
  5. DIOVAN [Suspect]

REACTIONS (1)
  - DEATH [None]
